FAERS Safety Report 8308721-5 (Version None)
Quarter: 2012Q2

REPORT INFORMATION
  Report Type: 
  Country: None (occurrence: None)
  Receive Date: 20120420
  Receipt Date: 20120420
  Transmission Date: 20120825
  Serious: Yes (Other)
  Sender: FDA-Public Use
  Company Number: None

PATIENT
  Sex: Female

DRUGS (1)
  1. BUPROPION HYDROCHLORIDE (WELLBUTRIN XL) [Suspect]
     Dosage: 150MG QD
     Dates: start: 20110701

REACTIONS (2)
  - DRUG INTOLERANCE [None]
  - ABDOMINAL DISTENSION [None]
